FAERS Safety Report 4738789-4 (Version None)
Quarter: 2005Q3

REPORT INFORMATION
  Report Type: 
  Country: None (occurrence: None)
  Receive Date: 20050804
  Receipt Date: 20050801
  Transmission Date: 20060218
  Serious: No
  Sender: FDA-Public Use
  Company Number: A501425410/PHRM2005FRO2181

PATIENT
  Age: 45 Year
  Sex: Male

DRUGS (1)
  1. AK-FLUOR 10% AKORN [Suspect]
     Indication: ANGIOGRAM
     Dosage: INTRAVENOUS
     Route: 042
     Dates: start: 20050705, end: 20050705

REACTIONS (2)
  - NAUSEA [None]
  - RASH [None]
